FAERS Safety Report 5248701-X (Version None)
Quarter: 2007Q1

REPORT INFORMATION
  Report Type: 
  Country: None (occurrence: None)
  Receive Date: 20070222
  Receipt Date: 20070212
  Transmission Date: 20070707
  Serious: Yes (Other)
  Sender: FDA-Public Use
  Company Number: 34334

PATIENT
  Age: 70 Year
  Sex: Male

DRUGS (1)
  1. DECARBAZINE FOR INJ. USP 200MG - BEDFORD LABS, INC. [Suspect]

REACTIONS (2)
  - DEEP VEIN THROMBOSIS [None]
  - PULMONARY EMBOLISM [None]
